FAERS Safety Report 7959342-5 (Version None)
Quarter: 2011Q4

REPORT INFORMATION
  Report Type: 
  Country: None (occurrence: None)
  Receive Date: 20111206
  Receipt Date: 20111201
  Transmission Date: 20120403
  Serious: Yes (Other)
  Sender: FDA-Public Use
  Company Number: US-PFIZER INC-2011264090

PATIENT
  Sex: Female
  Weight: 83.9 kg

DRUGS (4)
  1. PREMARIN [Suspect]
     Dosage: UNK
     Dates: start: 20110101
  2. PREMARIN [Suspect]
     Indication: VULVOVAGINAL DRYNESS
     Dosage: UNK
  3. PREMARIN [Suspect]
     Dosage: UNK
     Route: 067
  4. LEVOTHYROXINE SODIUM [Concomitant]
     Indication: THYROID DISORDER
     Dosage: 0.5 MG, EVERY OTHER DAY

REACTIONS (3)
  - INFECTION [None]
  - VULVOVAGINAL BURNING SENSATION [None]
  - CYSTITIS [None]
